FAERS Safety Report 14257437 (Version 11)
Quarter: 2025Q4

REPORT INFORMATION
  Report Type: Spontaneous
  Country: EU (occurrence: EU)
  Receive Date: 20171207
  Receipt Date: 20251024
  Transmission Date: 20260117
  Serious: Yes (Death, Life-Threatening, Hospitalization, Other)
  Sender: MACLEODS
  Company Number: None

PATIENT

DRUGS (18)
  1. LEVOFLOXACIN [Suspect]
     Active Substance: LEVOFLOXACIN
     Indication: Staphylococcal infection
     Dosage: 125 MG, QD (MAINTENENCE DOSE)
     Route: 048
     Dates: start: 20150522
  2. LEVOFLOXACIN [Suspect]
     Active Substance: LEVOFLOXACIN
     Indication: Staphylococcal skin infection
     Dosage: 500 MG, UNK (LOADING DOSE),1 TOTAL
     Route: 048
     Dates: start: 20150521
  3. RIFAMPIN [Suspect]
     Active Substance: RIFAMPIN
     Indication: Staphylococcal infection
     Dosage: UNK
     Route: 065
  4. RIFAMPIN [Suspect]
     Active Substance: RIFAMPIN
     Indication: Staphylococcal skin infection
     Dosage: 300 MG, QD
     Route: 042
     Dates: start: 20150521
  5. RIFAMPIN [Suspect]
     Active Substance: RIFAMPIN
     Indication: Product used for unknown indication
  6. FENTANYL [Suspect]
     Active Substance: FENTANYL
     Indication: Procedural pain
     Dosage: 200 MILLIGRAM
     Route: 065
     Dates: start: 20150521
  7. FENTANYL [Suspect]
     Active Substance: FENTANYL
     Indication: Dialysis
  8. FENTANYL [Suspect]
     Active Substance: FENTANYL
     Indication: Ischaemic limb pain
     Dosage: 200 UG, UNK (TABLET)
     Route: 048
     Dates: start: 2015, end: 20150602
  9. FENTANYL [Suspect]
     Active Substance: FENTANYL
     Indication: Pain in extremity
     Dosage: 25 UG, 1 PER HOUR (TRANSDERMAL PATCH)
     Route: 062
     Dates: start: 20150528, end: 20150602
  10. FENTANYL [Suspect]
     Active Substance: FENTANYL
     Indication: Angiopathy
     Dosage: 100 UG, UNK (TABLET), 100 MCG 1 TABLET UPGRADEABLE TO 200 MCG.
     Route: 048
     Dates: start: 20150602, end: 20150602
  11. FENTANYL [Suspect]
     Active Substance: FENTANYL
     Indication: Pain in extremity
     Dosage: 25 DF, PER HOUR
     Route: 062
     Dates: start: 20150521
  12. FENTANYL [Suspect]
     Active Substance: FENTANYL
     Route: 048
     Dates: start: 20150602, end: 20150602
  13. FENTANYL [Suspect]
     Active Substance: FENTANYL
     Dosage: 100 UG, UNK
     Route: 065
     Dates: start: 2015, end: 20150602
  14. FENTANYL [Suspect]
     Active Substance: FENTANYL
     Dosage: 12 UG, 1 PER HOUR (TRANSDERMAL PATCH)
     Route: 062
     Dates: start: 20150521, end: 20150528
  15. VANCOMYCIN [Concomitant]
     Active Substance: VANCOMYCIN
     Dosage: UNK, BY SWAB APPLIED TO A LEFT FOOT ULCER POSITIVE FOR STAPHYLOCOCCUS AUREUS
     Route: 061
     Dates: start: 2015
  16. VANCOMYCIN [Concomitant]
     Active Substance: VANCOMYCIN
     Indication: Staphylococcal skin infection
     Dosage: 1 G, UNK  (LOADING DOSE), 1 TOTAL, INJECTION
     Route: 042
     Dates: start: 20150521, end: 20150521
  17. VANCOMYCIN [Concomitant]
     Active Substance: VANCOMYCIN
     Dosage: 500 MG, (MAINTENANCE DOSE; AT THE END OF DIALYSIS;INJECTION), 1 CYCLE
     Route: 042
     Dates: start: 20150522
  18. VANCOMYCIN [Concomitant]
     Active Substance: VANCOMYCIN
     Dosage: BY A SWAB APPLIED TO A LEFT FOOT ULCER POSITIVE FOR STAPHYLOCOCCUS AUREUS
     Route: 061
     Dates: start: 2015

REACTIONS (21)
  - Sepsis [Fatal]
  - Pyrexia [Fatal]
  - Generalised onset non-motor seizure [Fatal]
  - Hallucination [Unknown]
  - Status epilepticus [Recovered/Resolved]
  - Sopor [Recovered/Resolved]
  - Altered state of consciousness [Recovering/Resolving]
  - Depressed level of consciousness [Recovering/Resolving]
  - Miosis [Unknown]
  - Somnolence [Recovered/Resolved]
  - Staphylococcal infection [Fatal]
  - Tremor [Unknown]
  - Hyperpyrexia [Fatal]
  - Toxicity to various agents [Unknown]
  - Therapy naive [Unknown]
  - Overdose [Unknown]
  - Off label use [Fatal]
  - Prescribed overdose [Fatal]
  - Prescribed overdose [Fatal]
  - Drug ineffective [Unknown]
  - Drug interaction [Unknown]

NARRATIVE: CASE EVENT DATE: 20150206
